FAERS Safety Report 9214558 (Version 1)
Quarter: 2013Q2

REPORT INFORMATION
  Report Type: Spontaneous
  Country: KR (occurrence: None)
  Receive Date: 20130402
  Receipt Date: 20130402
  Transmission Date: 20140414
  Serious: Yes (Death, Other)
  Sender: FDA-Public Use
  Company Number: 2013P1003667

PATIENT
  Sex: 0

DRUGS (5)
  1. IRINOTECAN [Suspect]
     Indication: ADENOCARCINOMA GASTRIC
     Route: 042
  2. DEXAMETHASONE [Concomitant]
  3. UNSPECIFIED 5HTP 3 RECEPTOR [Concomitant]
  4. ANTAGONIST [Concomitant]
  5. ATROPINE [Concomitant]

REACTIONS (2)
  - Acute respiratory failure [None]
  - Pulmonary embolism [None]
